FAERS Safety Report 16033095 (Version 1)
Quarter: 2019Q1

REPORT INFORMATION
  Report Type: Spontaneous
  Country: US (occurrence: US)
  Receive Date: 20190305
  Receipt Date: 20190305
  Transmission Date: 20190418
  Serious: No
  Sender: FDA-Public Use
  Company Number: US-IMPAX LABORATORIES, LLC-2018-IPXL-02347

PATIENT
  Age: 71 Year
  Sex: Female

DRUGS (1)
  1. RYTARY [Suspect]
     Active Substance: CARBIDOPA\LEVODOPA
     Indication: PRODUCT USED FOR UNKNOWN INDICATION
     Dosage: 36.25/145 MG, 2 CAPSULES THREE TIMES A DAY
     Route: 065
     Dates: start: 201805

REACTIONS (7)
  - Dyskinesia [Recovering/Resolving]
  - Feeling hot [Unknown]
  - Tremor [Recovering/Resolving]
  - Nausea [Unknown]
  - Weight decreased [Recovered/Resolved]
  - Asthenia [Unknown]
  - Drug effect variable [Unknown]

NARRATIVE: CASE EVENT DATE: 2018
